FAERS Safety Report 10487128 (Version 1)
Quarter: 2014Q4

REPORT INFORMATION
  Report Type: Report from Study
  Country: ES (occurrence: ES)
  Receive Date: 20141001
  Receipt Date: 20141001
  Transmission Date: 20150528
  Serious: Yes (Other)
  Sender: FDA-Public Use
  Company Number: ES-AMGEN-ESPSP2014074266

PATIENT
  Sex: Female

DRUGS (1)
  1. PROLIA [Suspect]
     Active Substance: DENOSUMAB
     Indication: OSTEOPOROSIS POSTMENOPAUSAL
     Route: 065

REACTIONS (6)
  - Surgery [Unknown]
  - Fall [Unknown]
  - Gastrointestinal disorder [Unknown]
  - Back pain [Unknown]
  - Peptic ulcer [Unknown]
  - Gastrooesophageal reflux disease [Unknown]
